FAERS Safety Report 9416462 (Version 20)
Quarter: 2014Q4

REPORT INFORMATION
  Report Type: Spontaneous
  Country: US (occurrence: US)
  Receive Date: 20130724
  Receipt Date: 20141204
  Transmission Date: 20150529
  Serious: Yes (Other)
  Sender: FDA-Public Use
  Company Number: PHEH2013US015362

PATIENT
  Sex: Female

DRUGS (8)
  1. AREDIA [Suspect]
     Active Substance: PAMIDRONATE DISODIUM
     Indication: PRODUCT USED FOR UNKNOWN INDICATION
     Route: 042
  2. 5 FLUORO URACIL [Concomitant]
     Active Substance: FLUOROURACIL
     Indication: PRODUCT USED FOR UNKNOWN INDICATION
     Route: 065
  3. ARIMIDEX [Concomitant]
     Active Substance: ANASTROZOLE
     Indication: PRODUCT USED FOR UNKNOWN INDICATION
     Route: 065
  4. CYTOXAN [Concomitant]
     Active Substance: CYCLOPHOSPHAMIDE
     Indication: PRODUCT USED FOR UNKNOWN INDICATION
     Route: 065
  5. METHOTREXATE [Concomitant]
     Active Substance: METHOTREXATE
     Indication: PRODUCT USED FOR UNKNOWN INDICATION
     Route: 065
  6. EFFEXOR [Concomitant]
     Active Substance: VENLAFAXINE HYDROCHLORIDE
     Indication: PRODUCT USED FOR UNKNOWN INDICATION
     Route: 065
  7. ZOMETA [Suspect]
     Active Substance: ZOLEDRONIC ACID
     Indication: PRODUCT USED FOR UNKNOWN INDICATION
     Dosage: 4 MG, Q3MO
     Route: 042
  8. FEMARA [Concomitant]
     Active Substance: LETROZOLE
     Indication: PRODUCT USED FOR UNKNOWN INDICATION
     Route: 065

REACTIONS (149)
  - Bone lesion [Unknown]
  - Osteonecrosis of jaw [Unknown]
  - Hypertension [Unknown]
  - Haemorrhoids [Unknown]
  - Hiatus hernia [Unknown]
  - Osteopenia [Unknown]
  - Memory impairment [Unknown]
  - Intervertebral disc protrusion [Unknown]
  - Polyneuropathy [Unknown]
  - Fall [Unknown]
  - Arthralgia [Unknown]
  - Dyspnoea exertional [Unknown]
  - Gastrooesophageal reflux disease [Unknown]
  - Mental disorder [Unknown]
  - Myocardial infarction [Unknown]
  - Deformity [Unknown]
  - Disability [Unknown]
  - Influenza [Unknown]
  - Mucosal infection [Unknown]
  - Nausea [Unknown]
  - Paraesthesia [Unknown]
  - Cough [Unknown]
  - Vertebral lesion [Unknown]
  - Diabetes mellitus [Unknown]
  - Dental caries [Unknown]
  - Micturition urgency [Unknown]
  - Cerebral atrophy [Unknown]
  - Diabetic nephropathy [Unknown]
  - Hypotension [Unknown]
  - Haematuria [Unknown]
  - Nodule [Unknown]
  - Burning sensation [Unknown]
  - Confusional state [Unknown]
  - Dehydration [Unknown]
  - Hypoglycaemia [Unknown]
  - Pain in extremity [Unknown]
  - Musculoskeletal chest pain [Unknown]
  - Injury [Unknown]
  - Vertebral osteophyte [Unknown]
  - Spinal osteoarthritis [Unknown]
  - Lipomatosis [Unknown]
  - Lumbar radiculopathy [Unknown]
  - Carpal tunnel syndrome [Unknown]
  - Pain in jaw [Unknown]
  - Enthesopathy [Unknown]
  - Palpitations [Unknown]
  - Arteriosclerosis coronary artery [Unknown]
  - Infection [Unknown]
  - Anhedonia [Unknown]
  - Viral infection [Unknown]
  - VIIth nerve paralysis [Unknown]
  - Left atrial dilatation [Unknown]
  - Fatigue [Unknown]
  - Chills [Unknown]
  - Coronary artery disease [Unknown]
  - Hepatomegaly [Unknown]
  - Periodontal disease [Unknown]
  - Gastritis [Unknown]
  - Synovitis [Unknown]
  - Spinal deformity [Unknown]
  - Neuralgia [Unknown]
  - Pain [Unknown]
  - Urosepsis [Unknown]
  - Disturbance in attention [Unknown]
  - Mucosal dryness [Unknown]
  - Pruritus [Unknown]
  - Neutropenia [Unknown]
  - Oropharyngeal pain [Unknown]
  - Chest discomfort [Unknown]
  - Obesity [Unknown]
  - Sciatica [Unknown]
  - Impaired healing [Unknown]
  - Breast cancer [Unknown]
  - Aortic arteriosclerosis [Unknown]
  - Depression [Unknown]
  - Hyperlipidaemia [Unknown]
  - Dupuytren^s contracture [Unknown]
  - Trigger finger [Unknown]
  - Chronic obstructive pulmonary disease [Unknown]
  - Skin ulcer [Unknown]
  - Hypothyroidism [Unknown]
  - Hypercholesterolaemia [Unknown]
  - Tendonitis [Unknown]
  - Dysthymic disorder [Unknown]
  - Sinus tachycardia [Unknown]
  - Neuropathy peripheral [Unknown]
  - Cholelithiasis [Unknown]
  - Facial paresis [Unknown]
  - Eyelid ptosis [Unknown]
  - Type 2 diabetes mellitus [Unknown]
  - Mental status changes [Unknown]
  - Musculoskeletal pain [Unknown]
  - Chest pain [Unknown]
  - Pyrexia [Unknown]
  - Diarrhoea [Unknown]
  - Asthenia [Unknown]
  - Vomiting [Unknown]
  - Lethargy [Unknown]
  - Myocardial ischaemia [Unknown]
  - Arthropathy [Unknown]
  - Intervertebral disc space narrowing [Unknown]
  - Dermatitis [Unknown]
  - Faecal incontinence [Unknown]
  - Hypoaesthesia [Unknown]
  - Gingival pain [Unknown]
  - Dyspnoea [Unknown]
  - Intervertebral disc disorder [Unknown]
  - Urinary tract infection [Unknown]
  - Ecchymosis [Unknown]
  - Presyncope [Unknown]
  - Productive cough [Unknown]
  - Neck pain [Unknown]
  - Constipation [Unknown]
  - Hot flush [Unknown]
  - Gait disturbance [Unknown]
  - Metastases to bone [Unknown]
  - Contusion [Unknown]
  - Upper respiratory tract infection [Unknown]
  - Aortic calcification [Unknown]
  - Eye pruritus [Unknown]
  - Rectal haemorrhage [Unknown]
  - Osteolysis [Unknown]
  - Spinal column stenosis [Unknown]
  - Neuritis [Unknown]
  - Atelectasis [Unknown]
  - Pneumonia [Unknown]
  - Dizziness [Unknown]
  - Anxiety [Unknown]
  - Emotional distress [Unknown]
  - Pyelonephritis [Unknown]
  - Exostosis [Unknown]
  - Back pain [Unknown]
  - Erythema [Unknown]
  - Decreased appetite [Unknown]
  - Osteoarthritis [Unknown]
  - Diabetic neuropathy [Unknown]
  - Angina pectoris [Unknown]
  - Amnesia [Unknown]
  - Coronary artery stenosis [Unknown]
  - Dyshidrotic eczema [Unknown]
  - Essential hypertension [Unknown]
  - Nodal osteoarthritis [Unknown]
  - Tenosynovitis [Unknown]
  - Mononeuritis [Unknown]
  - Acute coronary syndrome [Unknown]
  - Cerebral arteriosclerosis [Unknown]
  - Cerebral small vessel ischaemic disease [Unknown]
  - Headache [Unknown]
  - Hyperhidrosis [Unknown]
